FAERS Safety Report 15966480 (Version 2)
Quarter: 2019Q1

REPORT INFORMATION
  Report Type: Spontaneous
  Country: JP (occurrence: JP)
  Receive Date: 20190215
  Receipt Date: 20190305
  Transmission Date: 20190418
  Serious: Yes (Death)
  Sender: FDA-Public Use
  Company Number: JP-ROCHE-2265584

PATIENT
  Age: 93 Year
  Sex: Female
  Weight: 43 kg

DRUGS (12)
  1. VERAPAMIL HYDROCHLORIDE. [Concomitant]
     Active Substance: VERAPAMIL HYDROCHLORIDE
     Indication: ARRHYTHMIA
     Dosage: DOSE INTERVAL UNCERTAINTY
     Route: 048
     Dates: end: 20190120
  2. TAMIFLU [Suspect]
     Active Substance: OSELTAMIVIR PHOSPHATE
     Indication: INFLUENZA
     Route: 048
     Dates: start: 20190116, end: 20190116
  3. ALPRAZOLAM. [Concomitant]
     Active Substance: ALPRAZOLAM
     Indication: ANXIETY
     Dosage: DOSE INTERVAL UNCERTAINTY
     Route: 048
     Dates: end: 20190120
  4. FUROSEMIDE. [Concomitant]
     Active Substance: FUROSEMIDE
     Indication: CARDIAC FAILURE CONGESTIVE
     Dosage: DOSE INTERVAL UNCERTAINTY
     Route: 048
     Dates: end: 20190120
  5. DISOPYRAMIDE [Concomitant]
     Active Substance: DISOPYRAMIDE
     Indication: ARRHYTHMIA
     Dosage: DOSE INTERVAL UNCERTAINTY
     Route: 048
     Dates: end: 20190120
  6. DIOCTYL SODIUM SULPHOSUCCINATE [Concomitant]
     Indication: CONSTIPATION
     Dosage: DOSE INTERVAL UNCERTAINTY
     Route: 048
     Dates: end: 20190120
  7. EC-DOPARL [Concomitant]
     Active Substance: BENSERAZIDE HYDROCHLORIDE\LEVODOPA
     Indication: PARKINSON^S DISEASE
     Dosage: IN THE MORNING: 2 TABLET, IN THE DAY TIME: 1 TABLET, IN THE EVENING: 1 TABLET
     Route: 048
     Dates: end: 20190120
  8. SENNOSIDE [Concomitant]
     Active Substance: SENNOSIDES
     Route: 048
  9. TAMIFLU [Suspect]
     Active Substance: OSELTAMIVIR PHOSPHATE
     Route: 048
     Dates: start: 20190117, end: 20190120
  10. SPIRONOLACTONE. [Concomitant]
     Active Substance: SPIRONOLACTONE
     Indication: CARDIAC FAILURE
     Dosage: DOSE INTERVAL UNCERTAINTY
     Route: 048
     Dates: end: 20190120
  11. LANSOPRAZOLE. [Concomitant]
     Active Substance: LANSOPRAZOLE
     Indication: GASTROOESOPHAGEAL REFLUX DISEASE
     Dosage: DOSE INTERVAL UNCERTAINTY
     Route: 048
     Dates: end: 20190120
  12. NITRODERM [Concomitant]
     Active Substance: NITROGLYCERIN
     Indication: ANGINA PECTORIS
     Dosage: DOSE INTERVAL UNCERTAINTY
     Route: 062
     Dates: end: 20190120

REACTIONS (2)
  - Multiple organ dysfunction syndrome [Fatal]
  - Sepsis [Fatal]

NARRATIVE: CASE EVENT DATE: 20190121
